FAERS Safety Report 8095487-X (Version None)
Quarter: 2012Q1

REPORT INFORMATION
  Report Type: 
  Country: None (occurrence: None)
  Receive Date: 20120129
  Receipt Date: 20111218
  Transmission Date: 20120608
  Serious: No
  Sender: FDA-Public Use
  Company Number: US-ABBOTT-11P-163-0884351-00

PATIENT
  Age: 36 Year
  Sex: Female

DRUGS (2)
  1. INTERGRA IRON SUPPLEMANT [Concomitant]
     Indication: BLOOD IRON DECREASED
     Dates: start: 20111212
  2. HUMIRA [Suspect]
     Indication: PSORIASIS
     Dates: start: 20111111

REACTIONS (2)
  - SINUS DISORDER [None]
  - BLOOD IRON DECREASED [None]
